FAERS Safety Report 9718798 (Version 1)
Quarter: 2013Q4

REPORT INFORMATION
  Report Type: Spontaneous
  Country: US (occurrence: US)
  Receive Date: 20131127
  Receipt Date: 20131127
  Transmission Date: 20140711
  Serious: Yes (Other)
  Sender: FDA-Public Use
  Company Number: US-PFIZER INC-2013334677

PATIENT
  Age: 31 Year
  Sex: Male

DRUGS (1)
  1. FLUCONAZOLE [Suspect]
     Indication: FUNGAEMIA
     Dosage: 800 MG, DAILY (8 MG/KG/DAY)
     Route: 048

REACTIONS (2)
  - Torsade de pointes [Unknown]
  - Ventricular fibrillation [Unknown]
